FAERS Safety Report 17201731 (Version 2)
Quarter: 2020Q1

REPORT INFORMATION
  Report Type: Spontaneous
  Country: SE (occurrence: SE)
  Receive Date: 20191226
  Receipt Date: 20200102
  Transmission Date: 20200409
  Serious: Yes (Hospitalization)
  Sender: FDA-Public Use
  Company Number: SE-PFIZER INC-2019547428

PATIENT
  Age: 29 Year

DRUGS (4)
  1. PROPAVAN [Suspect]
     Active Substance: PROPIOMAZINE
     Dosage: 1500 MG, (UNSPECIFIED FREQUENCY, 60 PCS)
     Route: 048
     Dates: start: 20180220, end: 20180220
  2. CISORDINOL [Suspect]
     Active Substance: ZUCLOPENTHIXOL
     Dosage: 440 MG, (UNSPECIFIED FREQUENCY, 44 PCS OF 10 MG)
     Dates: start: 20180220, end: 20180220
  3. LYRICA [Suspect]
     Active Substance: PREGABALIN
     Dosage: 800 MG, (UNSPECIFIED FREQUENCY, 22 PCS A 300 MG 44 PCS OF 50 MG)
     Dates: start: 20180220, end: 20180220
  4. STESOLID [Suspect]
     Active Substance: DIAZEPAM
     Dosage: AT 220 MG, (UNSPECIFIED FREQUENCY, 44 PCS OF 5 MG)
     Dates: start: 20180220, end: 20180220

REACTIONS (3)
  - Intentional overdose [Unknown]
  - Intentional self-injury [Unknown]
  - Depressed level of consciousness [Unknown]

NARRATIVE: CASE EVENT DATE: 20180220
